FAERS Safety Report 4648148-0 (Version None)
Quarter: 2005Q2

REPORT INFORMATION
  Report Type: 
  Country: None (occurrence: None)
  Receive Date: 20050331
  Receipt Date: 20041209
  Transmission Date: 20051028
  Serious: Yes (Death)
  Sender: FDA-Public Use
  Company Number: 04P-163-0282864

PATIENT
  Sex: Female

DRUGS (7)
  1. HUMIRA [Suspect]
     Indication: RHEUMATOID ARTHRITIS
     Dosage: SUBCUTANEOUS
     Route: 058
  2. INSULIN [Concomitant]
  3. CELECOXIB [Concomitant]
  4. ATORVASTATIN CALCIUM [Concomitant]
  5. FORTAMAT [Concomitant]
  6. LANSOPRAZOLE [Concomitant]
  7. IBUPROFEN [Concomitant]

REACTIONS (1)
  - DEATH [None]
